FAERS Safety Report 7078985-7 (Version None)
Quarter: 2010Q4

REPORT INFORMATION
  Report Type: 
  Country: None (occurrence: None)
  Receive Date: 20101102
  Receipt Date: 20101022
  Transmission Date: 20110411
  Serious: Yes (Death, Hospitalization)
  Sender: FDA-Public Use
  Company Number: JP-ROCHE-697851

PATIENT
  Sex: Female
  Weight: 63.3 kg

DRUGS (16)
  1. BEVACIZUMAB [Suspect]
     Indication: BREAST CANCER
     Dosage: ROUTE: INTRAVENOUS (NOT OTHERWISE SPECIFIED)
     Route: 042
     Dates: start: 20071018
  2. BEVACIZUMAB [Suspect]
     Route: 042
     Dates: start: 20100331, end: 20100331
  3. PACLITAXEL [Suspect]
     Indication: BREAST CANCER
     Dosage: ROUTE: INTRAVENOUS (NOT OTHERWISE SPECIFIED), DOSE DECREASED
     Route: 042
     Dates: start: 20071018
  4. PACLITAXEL [Suspect]
     Dosage: ROUTE: INTRAVENOUS (NOT OTHERWISE SPECIFIED), DOSE DECREASED
     Route: 042
     Dates: start: 20090309, end: 20100317
  5. DECADRON [Concomitant]
     Dosage: ROUTE: INTRAVENOUS (NOT OTHERWISE SPECIFIED)
     Route: 042
     Dates: start: 20071018, end: 20100331
  6. RESTAMIN [Concomitant]
     Route: 048
     Dates: start: 20071018, end: 20100331
  7. ZANTAC [Concomitant]
     Dosage: ROUTE: INTRAVENOUS (NOT OTHERWISE SPECIFIED)
     Route: 042
     Dates: start: 20071018, end: 20100331
  8. GOSHAJINKIGAN [Concomitant]
     Dosage: FORM: GRANULATED POWDER.
     Route: 048
     Dates: start: 20090221
  9. CYANOCOBALAMIN [Concomitant]
     Route: 048
     Dates: start: 20090319
  10. GLAKAY [Concomitant]
     Route: 048
     Dates: start: 20091010
  11. ACTONEL [Concomitant]
     Route: 048
     Dates: start: 20091011
  12. ELCITONIN [Concomitant]
     Route: 030
     Dates: start: 20090116
  13. MUCOSTA [Concomitant]
     Route: 048
     Dates: start: 20100303
  14. LOXONIN [Concomitant]
     Route: 048
     Dates: start: 20090930
  15. LENDORMIN [Concomitant]
     Route: 048
     Dates: start: 20100106
  16. MYSLEE [Concomitant]
     Route: 048
     Dates: start: 20100303

REACTIONS (3)
  - CARDIAC FAILURE CONGESTIVE [None]
  - CARDIOGENIC SHOCK [None]
  - MYOCARDIAL INFARCTION [None]
